FAERS Safety Report 6197972-4 (Version None)
Quarter: 2009Q2

REPORT INFORMATION
  Report Type: 
  Country: None (occurrence: None)
  Receive Date: 20090521
  Receipt Date: 20090518
  Transmission Date: 20091009
  Serious: Yes (Life-Threatening, Hospitalization)
  Sender: FDA-Public Use
  Company Number: D0061691A

PATIENT
  Age: 51 Year
  Sex: Female
  Weight: 92 kg

DRUGS (14)
  1. SALBUTAMOL [Suspect]
     Route: 055
     Dates: start: 20080201
  2. AQUAPHOR [Suspect]
     Dosage: 20MG PER DAY
     Route: 048
     Dates: start: 20080301, end: 20080903
  3. TORSEMIDE [Suspect]
     Dosage: 120MG PER DAY
     Route: 048
     Dates: start: 20080301, end: 20080903
  4. ALDACTONE [Suspect]
     Dosage: 50MG TWICE PER DAY
     Route: 048
     Dates: start: 20080501
  5. PREDNISOLONE [Suspect]
     Indication: HYPEREOSINOPHILIC SYNDROME
     Dosage: 100MG PER DAY
     Route: 048
     Dates: start: 20080301
  6. ASPIRIN [Concomitant]
     Dosage: 100MG PER DAY
     Route: 048
     Dates: start: 20080301
  7. BISOPROLOL [Concomitant]
     Dosage: 2.5MG PER DAY
     Route: 048
     Dates: start: 20080601
  8. CALCILAC [Concomitant]
     Indication: RENAL OSTEODYSTROPHY
     Dosage: 500MG PER DAY
     Route: 048
     Dates: start: 20080601
  9. FALITHROM [Concomitant]
     Dosage: 3MG SINGLE DOSE
     Route: 048
     Dates: start: 20080301, end: 20080903
  10. MAGNESIUM VERLA [Concomitant]
     Route: 048
     Dates: start: 20080601
  11. PANTOZOL [Concomitant]
     Dosage: 40MG PER DAY
     Route: 048
     Dates: start: 20080201
  12. ROCALTROL [Concomitant]
     Indication: RENAL OSTEODYSTROPHY
     Dosage: .25MCG PER DAY
     Route: 048
     Dates: start: 20080301
  13. SYMBICORT [Concomitant]
     Route: 055
     Dates: start: 20080201, end: 20080501
  14. VIANI [Concomitant]
     Route: 055
     Dates: start: 20041001, end: 20050101

REACTIONS (8)
  - COUGH [None]
  - DIARRHOEA [None]
  - DIZZINESS [None]
  - DRUG INTERACTION [None]
  - DYSPNOEA [None]
  - HYPOKALAEMIA [None]
  - HYPONATRAEMIA [None]
  - METABOLIC ALKALOSIS [None]
